FAERS Safety Report 8020366-3 (Version None)
Quarter: 2012Q1

REPORT INFORMATION
  Report Type: 
  Country: None (occurrence: None)
  Receive Date: 20120103
  Receipt Date: 20111222
  Transmission Date: 20120608
  Serious: Yes (Other)
  Sender: FDA-Public Use
  Company Number: US-ELI_LILLY_AND_COMPANY-US201112007411

PATIENT
  Sex: Female

DRUGS (1)
  1. FORTEO [Suspect]
     Indication: OSTEOPOROSIS
     Dosage: 20 UG, QD
     Dates: start: 20100401

REACTIONS (5)
  - MOVEMENT DISORDER [None]
  - COMPRESSION FRACTURE [None]
  - NERVOUS SYSTEM DISORDER [None]
  - DEVICE EXTRUSION [None]
  - BACK PAIN [None]
